FAERS Safety Report 6412226-6 (Version None)
Quarter: 2009Q4

REPORT INFORMATION
  Report Type: 
  Country: None (occurrence: None)
  Receive Date: 20091023
  Receipt Date: 20091014
  Transmission Date: 20100525
  Serious: Yes (Hospitalization)
  Sender: FDA-Public Use
  Company Number: B0598634A

PATIENT
  Sex: Male

DRUGS (2)
  1. KIVEXA [Suspect]
     Indication: HIV INFECTION
     Route: 065
     Dates: start: 20070701, end: 20081101
  2. KALETRA [Concomitant]
     Indication: HIV INFECTION
     Route: 065
     Dates: start: 20030201, end: 20081101

REACTIONS (1)
  - ACUTE MYOCARDIAL INFARCTION [None]
